FAERS Safety Report 4948146-3 (Version None)
Quarter: 2006Q1

REPORT INFORMATION
  Report Type: 
  Country: None (occurrence: None)
  Receive Date: 20060320
  Receipt Date: 20060309
  Transmission Date: 20060701
  Serious: Yes (Hospitalization, Other)
  Sender: FDA-Public Use
  Company Number: PHBS2006GB03810

PATIENT
  Age: 55 Year
  Sex: Male

DRUGS (3)
  1. ANTIHYPERTENSIVES [Concomitant]
  2. TESTOSTERONE [Concomitant]
  3. IMATINIB [Suspect]
     Indication: CHRONIC MYELOID LEUKAEMIA
     Dosage: 600 MG/DAY

REACTIONS (6)
  - CATARACT [None]
  - CATARACT OPERATION [None]
  - GLARE [None]
  - MACULAR OEDEMA [None]
  - VISUAL ACUITY REDUCED [None]
  - VISUAL ACUITY TESTS ABNORMAL [None]
